FAERS Safety Report 7437573-0 (Version None)
Quarter: 2011Q2

REPORT INFORMATION
  Report Type: 
  Country: None (occurrence: None)
  Receive Date: 20110426
  Receipt Date: 20110414
  Transmission Date: 20111010
  Serious: Yes (Other)
  Sender: FDA-Public Use
  Company Number: US-ELI_LILLY_AND_COMPANY-US201103005501

PATIENT
  Sex: Female

DRUGS (2)
  1. FORTEO [Suspect]
     Indication: OSTEOPOROSIS
     Dosage: 20 UG, QD
     Route: 065
     Dates: start: 20110308
  2. FORTEO [Suspect]
     Dosage: 20 UG, QD
     Dates: end: 20110325

REACTIONS (9)
  - PYODERMA GANGRENOSUM [None]
  - PAIN [None]
  - VASCULITIS [None]
  - INJECTION SITE PRURITUS [None]
  - INJECTION SITE PAIN [None]
  - HYPERSENSITIVITY [None]
  - RASH GENERALISED [None]
  - SCAB [None]
  - INJECTION SITE ERYTHEMA [None]
